FAERS Safety Report 14859584 (Version 3)
Quarter: 2018Q4

REPORT INFORMATION
  Report Type: Spontaneous
  Country: US (occurrence: US)
  Receive Date: 20180508
  Receipt Date: 20181031
  Transmission Date: 20190204
  Serious: No
  Sender: FDA-Public Use
  Company Number: US-PFIZER INC-2017523984

PATIENT
  Age: 62 Year
  Sex: Female

DRUGS (23)
  1. DOCETAXEL. [Suspect]
     Active Substance: DOCETAXEL
     Indication: INVASIVE DUCTAL BREAST CARCINOMA
     Dosage: 114.8 MG, CYCLIC EVERY THREE WEEKS (06 CYCLES)
     Dates: start: 20140909, end: 20140930
  2. DOCETAXEL. [Suspect]
     Active Substance: DOCETAXEL
     Dosage: 114.8 MG, CYCLIC EVERY THREE WEEKS (06 CYCLES)
     Dates: start: 20141021
  3. PARAPLATIN [Concomitant]
     Active Substance: CARBOPLATIN
     Dosage: 499 MG, UNK
     Dates: start: 20141202
  4. FILGRASTIM [Concomitant]
     Active Substance: FILGRASTIM
     Dosage: UNK
  5. TAXOTERE [Suspect]
     Active Substance: DOCETAXEL
     Dosage: 114.8 MG, CYCLIC EVERY THREE WEEKS (06 CYCLES)
     Dates: start: 20141021
  6. TAXOTERE [Suspect]
     Active Substance: DOCETAXEL
     Dosage: 114.8 MG, CYCLIC EVERY THREE WEEKS (06 CYCLES)
     Dates: start: 20141202
  7. PARAPLATIN [Concomitant]
     Active Substance: CARBOPLATIN
     Dosage: 496 MG, UNK
     Dates: start: 20141021
  8. PARAPLATIN [Concomitant]
     Active Substance: CARBOPLATIN
     Dosage: 509 MG, UNK
     Dates: start: 20141111
  9. DECADRON [Concomitant]
     Active Substance: DEXAMETHASONE
     Dosage: UNK
  10. TAXOTERE [Suspect]
     Active Substance: DOCETAXEL
     Dosage: 114.8 MG, CYCLIC EVERY THREE WEEKS (06 CYCLES)
     Dates: start: 20141111
  11. DOCETAXEL. [Suspect]
     Active Substance: DOCETAXEL
     Dosage: 114.8 MG, CYCLIC EVERY THREE WEEKS (06 CYCLES)
     Dates: start: 20141111
  12. OMEPRAZOLE. [Concomitant]
     Active Substance: OMEPRAZOLE
     Dosage: UNK
     Dates: start: 2000
  13. HYDROCHLOROTHIAZIDE. [Concomitant]
     Active Substance: HYDROCHLOROTHIAZIDE
     Dosage: UNK
     Dates: start: 2000
  14. CETIRIZINE [Concomitant]
     Active Substance: CETIRIZINE HYDROCHLORIDE
     Dosage: UNK
  15. TAXOTERE [Suspect]
     Active Substance: DOCETAXEL
     Dosage: 114.8 MG, CYCLIC EVERY THREE WEEKS (06 CYCLES)
     Dates: end: 20141223
  16. PARAPLATIN [Concomitant]
     Active Substance: CARBOPLATIN
     Indication: CHEMOTHERAPY
     Dosage: 440 MG, UNK
     Dates: start: 20140909, end: 20140930
  17. PARAPLATIN [Concomitant]
     Active Substance: CARBOPLATIN
     Dosage: 532 MG, UNK
     Dates: end: 20141223
  18. BUPROPION. [Concomitant]
     Active Substance: BUPROPION
     Dosage: UNK
     Dates: start: 2000
  19. ONDANSETRON [Concomitant]
     Active Substance: ONDANSETRON
     Dosage: UNK
  20. DOCETAXEL. [Suspect]
     Active Substance: DOCETAXEL
     Dosage: 114.8 MG, CYCLIC EVERY THREE WEEKS (06 CYCLES)
     Dates: start: 20141202
  21. DOCETAXEL. [Suspect]
     Active Substance: DOCETAXEL
     Dosage: 114.8 MG, CYCLIC EVERY THREE WEEKS (06 CYCLES)
     Dates: end: 20141223
  22. TAXOTERE [Suspect]
     Active Substance: DOCETAXEL
     Indication: INVASIVE DUCTAL BREAST CARCINOMA
     Dosage: 114.8 MG, CYCLIC EVERY THREE WEEKS (06 CYCLES)
     Dates: start: 20140909, end: 20140930
  23. ANASTROZOLE. [Concomitant]
     Active Substance: ANASTROZOLE
     Indication: HORMONE THERAPY
     Dosage: UNK
     Dates: start: 201503

REACTIONS (6)
  - Alopecia [Not Recovered/Not Resolved]
  - Hair disorder [Not Recovered/Not Resolved]
  - Hair colour changes [Not Recovered/Not Resolved]
  - Madarosis [Not Recovered/Not Resolved]
  - Depression [Unknown]
  - Hair texture abnormal [Not Recovered/Not Resolved]

NARRATIVE: CASE EVENT DATE: 20150623
